FAERS Safety Report 5451071-5 (Version None)
Quarter: 2007Q3

REPORT INFORMATION
  Report Type: 
  Country: None (occurrence: None)
  Receive Date: 20070911
  Receipt Date: 20070830
  Transmission Date: 20080115
  Serious: Yes (Hospitalization)
  Sender: FDA-Public Use
  Company Number: 2007-02528

PATIENT
  Age: 71 Year
  Sex: Female
  Weight: 36 kg

DRUGS (8)
  1. VELCADE [Suspect]
     Indication: MULTIPLE MYELOMA
     Dosage: 1.30 MG/M2, INTRAVENOUS
     Route: 042
     Dates: start: 20070713, end: 20070720
  2. LASIX [Concomitant]
  3. OMEPRAZOLE [Concomitant]
  4. ALLOPURINOL [Concomitant]
  5. SELBEX (TEPRENONE) [Concomitant]
  6. ZOLPIDEM TARTRATE [Concomitant]
  7. VERAPAMIL HYDROCHLORIDE [Concomitant]
  8. TAMBOCOR [Concomitant]

REACTIONS (8)
  - ANAEMIA [None]
  - BLOOD CREATININE INCREASED [None]
  - BLOOD LACTATE DEHYDROGENASE INCREASED [None]
  - BLOOD UREA INCREASED [None]
  - C-REACTIVE PROTEIN INCREASED [None]
  - CARDIAC FAILURE [None]
  - HYPOTENSION [None]
  - PLEURAL EFFUSION [None]
